FAERS Safety Report 23545787 (Version 2)
Quarter: 2024Q1

REPORT INFORMATION
  Report Type: Spontaneous
  Country: US (occurrence: US)
  Receive Date: 20240220
  Receipt Date: 20240226
  Transmission Date: 20240409
  Serious: No
  Sender: FDA-Public Use
  Company Number: US-PFIZER INC-PV202400022284

PATIENT
  Sex: Female

DRUGS (5)
  1. FLUCONAZOLE [Suspect]
     Active Substance: FLUCONAZOLE
     Dosage: UNK
  2. LINEZOLID [Suspect]
     Active Substance: LINEZOLID
     Indication: Mycobacterium abscessus infection
     Dosage: UNK
     Route: 048
  3. LINEZOLID [Suspect]
     Active Substance: LINEZOLID
     Indication: Pathogen resistance
  4. NUZYRA [Suspect]
     Active Substance: OMADACYCLINE
     Indication: Pathogen resistance
     Dosage: UNK
     Route: 048
  5. NUZYRA [Suspect]
     Active Substance: OMADACYCLINE
     Indication: Mycobacterium abscessus infection

REACTIONS (3)
  - Neuropsychological symptoms [Recovered/Resolved]
  - Confusional state [Recovered/Resolved]
  - Autoscopy [Recovered/Resolved]
